FAERS Safety Report 16996744 (Version 2)
Quarter: 2020Q2

REPORT INFORMATION
  Report Type: Spontaneous
  Country: IT (occurrence: IT)
  Receive Date: 20191106
  Receipt Date: 20200504
  Transmission Date: 20200713
  Serious: Yes (Disabling)
  Sender: FDA-Public Use
  Company Number: IT-ROCHE-2459539

PATIENT
  Age: 20 Year
  Sex: Male
  Weight: 88 kg

DRUGS (1)
  1. RIVOTRIL [Suspect]
     Active Substance: CLONAZEPAM
     Indication: PANIC ATTACK
     Dosage: 2.5 MG/ML
     Route: 048

REACTIONS (2)
  - Feeling hot [Unknown]
  - Disturbance in attention [Unknown]
